FAERS Safety Report 4950126-9 (Version None)
Quarter: 2006Q1

REPORT INFORMATION
  Report Type: 
  Country: None (occurrence: None)
  Receive Date: 20060315
  Receipt Date: 20060303
  Transmission Date: 20060701
  Serious: Yes (Death, Life-Threatening)
  Sender: FDA-Public Use
  Company Number: 2006JP000553

PATIENT
  Age: 77 Year
  Sex: Male
  Weight: 50 kg

DRUGS (7)
  1. FUNGUARD (MICAFUNGIN INJECTION) [Suspect]
     Indication: FUNGAL INFECTION
     Dosage: 150 MG, IV DRIP
     Route: 041
     Dates: start: 20060123, end: 20060127
  2. MODACIN (CEFTAZIDIME) [Concomitant]
  3. CARBENIN (BETAMIPRON PANIPENEM) [Concomitant]
  4. NEO-MINOPHAGEN C (GLYCYRRHIZIC ACID, AMMONIUM SALT) [Concomitant]
  5. GRAN (FILGRASTIM) [Concomitant]
  6. SOLU-MEDROL [Concomitant]
  7. FOY (GABEXATE MESILATE) [Concomitant]

REACTIONS (3)
  - CONDITION AGGRAVATED [None]
  - LIVER DISORDER [None]
  - LYMPHOMA [None]
